FAERS Safety Report 4747621-4 (Version None)
Quarter: 2005Q3

REPORT INFORMATION
  Report Type: 
  Country: None (occurrence: None)
  Receive Date: 20050818
  Receipt Date: 20050127
  Transmission Date: 20060218
  Serious: No
  Sender: FDA-Public Use
  Company Number: US-BRISTOL-MYERS SQUIBB COMPANY-12841425

PATIENT
  Age: 7 Decade
  Sex: Male

DRUGS (1)
  1. TEQUIN [Suspect]
     Route: 048
     Dates: start: 20050101

REACTIONS (3)
  - ABDOMINAL DISCOMFORT [None]
  - FEELING ABNORMAL [None]
  - HYPERHIDROSIS [None]
